FAERS Safety Report 6634085-9 (Version None)
Quarter: 2010Q1

REPORT INFORMATION
  Report Type: 
  Country: None (occurrence: None)
  Receive Date: 20100315
  Receipt Date: 20100305
  Transmission Date: 20100710
  Serious: Yes (Other)
  Sender: FDA-Public Use
  Company Number: DE-BRISTOL-MYERS SQUIBB COMPANY-14626725

PATIENT
  Sex: Female

DRUGS (2)
  1. SUSTIVA [Suspect]
  2. ATRIPLA [Concomitant]

REACTIONS (2)
  - ABORTION [None]
  - PREGNANCY [None]
